FAERS Safety Report 23859349 (Version 1)
Quarter: 2024Q2

REPORT INFORMATION
  Report Type: Spontaneous
  Country: US (occurrence: None)
  Receive Date: 20240515
  Receipt Date: 20240515
  Transmission Date: 20240716
  Serious: Yes (Other)
  Sender: FDA-Public Use
  Company Number: US-ROCHE-3561139

PATIENT
  Age: 82 Year
  Sex: Male
  Weight: 82.628 kg

DRUGS (8)
  1. OCREVUS [Suspect]
     Active Substance: OCRELIZUMAB
     Indication: Primary progressive multiple sclerosis
     Dosage: YES
     Route: 042
     Dates: start: 2017
  2. BACLOFEN [Suspect]
     Active Substance: BACLOFEN
     Indication: Hypotonia
     Route: 065
  3. DALFAMPRIDINE [Concomitant]
     Active Substance: DALFAMPRIDINE
  4. FUROSEMIDE [Concomitant]
     Active Substance: FUROSEMIDE
  5. TIZANIDINE HYDROCHLORIDE [Concomitant]
     Active Substance: TIZANIDINE HYDROCHLORIDE
  6. MYRBETRIQ [Concomitant]
     Active Substance: MIRABEGRON
  7. LOSARTAN [Concomitant]
     Active Substance: LOSARTAN
  8. BETA BLOCKER (UNK INGREDIENTS) [Concomitant]

REACTIONS (7)
  - Muscle spasms [Unknown]
  - Urinary incontinence [Unknown]
  - Hypotension [Recovered/Resolved]
  - Contusion [Not Recovered/Not Resolved]
  - Road traffic accident [Unknown]
  - Muscle strain [Unknown]
  - Blood pressure increased [Not Recovered/Not Resolved]
